FAERS Safety Report 18128956 (Version 1)
Quarter: 2020Q3

REPORT INFORMATION
  Report Type: Spontaneous
  Country: US (occurrence: US)
  Receive Date: 20200807
  Receipt Date: 20200807
  Transmission Date: 20201103
  Serious: Yes (Life-Threatening)
  Sender: FDA-Public Use
  Company Number: None

PATIENT
  Age: 18 Year
  Sex: Male

DRUGS (19)
  1. IBUPROFEN. [Concomitant]
     Active Substance: IBUPROFEN
  2. DIPHENHYDRAMINE. [Concomitant]
     Active Substance: DIPHENHYDRAMINE
  3. DILTIAZEM. [Concomitant]
     Active Substance: DILTIAZEM
  4. ACETAMINOPHEN. [Concomitant]
     Active Substance: ACETAMINOPHEN
  5. ONDANSETRON [Concomitant]
     Active Substance: ONDANSETRON
  6. LIDOCAINE?TETRACAINE [Concomitant]
  7. ADENOSINE. [Concomitant]
     Active Substance: ADENOSINE
  8. REMDESIVIR 100MG [Suspect]
     Active Substance: REMDESIVIR
     Indication: COVID-19
     Route: 042
     Dates: start: 20200730, end: 20200802
  9. SODIUM CHLORIDE. [Concomitant]
     Active Substance: SODIUM CHLORIDE
  10. SODIUM CHLORIDE WITH KCI [Concomitant]
  11. HEPARIN [Concomitant]
     Active Substance: HEPARIN SODIUM
  12. ENOXAPARIN [Concomitant]
     Active Substance: ENOXAPARIN
  13. ALBUTEROL. [Concomitant]
     Active Substance: ALBUTEROL
  14. REMDEIVIR [Concomitant]
  15. LIDOCAINE PF [Concomitant]
     Active Substance: LIDOCAINE
  16. PAPAVERINE [Concomitant]
     Active Substance: PAPAVERINE
  17. REMDESIVIR 200MG [Suspect]
     Active Substance: REMDESIVIR
     Indication: COVID-19
     Route: 042
     Dates: start: 20200729, end: 20200729
  18. HEPARIN FLUSH [Concomitant]
     Active Substance: HEPARIN SODIUM
  19. PROCAINAMIDE HYDROCHLORIDE. [Concomitant]
     Active Substance: PROCAINAMIDE HYDROCHLORIDE

REACTIONS (3)
  - Tachycardia [None]
  - Arrhythmia [None]
  - Atrial fibrillation [None]
